FAERS Safety Report 10313826 (Version 1)
Quarter: 2014Q3

REPORT INFORMATION
  Report Type: Spontaneous
  Country: JP (occurrence: JP)
  Receive Date: 20140718
  Receipt Date: 20140718
  Transmission Date: 20150326
  Serious: Yes (Death, Other)
  Sender: FDA-Public Use
  Company Number: JP-WATSON-2014-15424

PATIENT
  Age: 73 Year
  Sex: Female

DRUGS (1)
  1. ALLOPURINOL (UNKNOWN) [Suspect]
     Active Substance: ALLOPURINOL
     Indication: GOUT
     Dosage: 300 MG, DAILY
     Route: 065

REACTIONS (7)
  - Sepsis [Fatal]
  - Drug reaction with eosinophilia and systemic symptoms [Fatal]
  - Blood creatinine increased [Unknown]
  - Human herpesvirus 6 infection [Unknown]
  - Toxic epidermal necrolysis [Fatal]
  - Cytomegalovirus infection [Unknown]
  - Pulmonary oedema [Unknown]
